FAERS Safety Report 4826134-5 (Version None)
Quarter: 2005Q4

REPORT INFORMATION
  Report Type: 
  Country: None (occurrence: None)
  Receive Date: 20051109
  Receipt Date: 20051028
  Transmission Date: 20060501
  Serious: Yes (Other)
  Sender: FDA-Public Use
  Company Number: 2005149649

PATIENT
  Age: 45 Year
  Sex: Male
  Weight: 87.9978 kg

DRUGS (11)
  1. NEURONTIN [Suspect]
     Indication: NEUROPATHY
     Dosage: ORAL
     Route: 048
     Dates: start: 20030101
  2. LYRICA [Suspect]
     Indication: NEUROPATHY
     Dosage: ORAL
     Route: 048
     Dates: start: 20051024, end: 20051025
  3. NORVIR [Concomitant]
  4. REYATAZ [Concomitant]
  5. ZIAGEN [Concomitant]
  6. FUZEON [Concomitant]
  7. NORCO [Concomitant]
  8. ATIVAN [Concomitant]
  9. EFFEXOR [Concomitant]
  10. ELAVIL [Concomitant]
  11. TOPAMAX [Concomitant]

REACTIONS (9)
  - ABNORMAL BEHAVIOUR [None]
  - AMNESIA [None]
  - BINGE EATING [None]
  - COMA [None]
  - CONVULSION [None]
  - EUPHORIC MOOD [None]
  - FEELING ABNORMAL [None]
  - STUPOR [None]
  - WEIGHT INCREASED [None]
